FAERS Safety Report 7015391-5 (Version None)
Quarter: 2010Q3

REPORT INFORMATION
  Report Type: 
  Country: None (occurrence: None)
  Receive Date: 20100922
  Receipt Date: 20100916
  Transmission Date: 20110219
  Serious: Yes (Hospitalization)
  Sender: FDA-Public Use
  Company Number: USA/USA/10/0014363

PATIENT
  Age: 60 Year
  Sex: Male
  Weight: 87.4 kg

DRUGS (17)
  1. GLIMEPIRIDE [Suspect]
     Indication: DIABETES MELLITUS
     Dosage: 4 MG, PER ORAL
     Route: 048
     Dates: start: 20100201, end: 20100621
  2. PRILOSEC (OMEPRAZOLE) [Concomitant]
  3. METOPROLOL SUCCINATE [Concomitant]
  4. LORAZEPAM [Concomitant]
  5. HYDROCHLOROTHIAZIDE [Concomitant]
  6. PLAVIX [Concomitant]
  7. TRICOR (ADENOSINE) [Concomitant]
  8. NIASPAN ER (NICOTINIC ACID) [Concomitant]
  9. RAMIPRIL (CAPSULES) (RAMIPRIL) [Concomitant]
  10. ASPIRIN [Concomitant]
  11. SALMON OIL [Concomitant]
  12. CENTRUM VITAMINS (CENTRUM /00554501/) [Concomitant]
  13. CO Q10 (UBIDECARENONE) [Concomitant]
  14. CLONIDINE [Concomitant]
  15. LIPITOR [Concomitant]
  16. GINGKOBA (TABLETS) [Concomitant]
  17. NORVASC [Concomitant]

REACTIONS (1)
  - ARTERIOSCLEROSIS [None]
